FAERS Safety Report 7058460-6 (Version None)
Quarter: 2010Q4

REPORT INFORMATION
  Report Type: 
  Country: None (occurrence: None)
  Receive Date: 20101022
  Receipt Date: 20101014
  Transmission Date: 20110411
  Serious: Yes (Hospitalization, Other)
  Sender: FDA-Public Use
  Company Number: GXKR2010DE11631

PATIENT
  Age: 18 Year
  Sex: Female

DRUGS (11)
  1. CISPLATIN [Suspect]
     Indication: NASOPHARYNGEAL CANCER
     Dosage: 100 MG, QD ON DAY 1
     Route: 065
  2. CISPLATIN [Suspect]
     Dosage: 70 MG/M2, QD
     Route: 065
  3. CISPLATIN [Suspect]
     Dosage: 20 MG/M2, QD ON DAYS 1-3 DURING RADIATION
     Route: 065
  4. FLUOROURACIL [Suspect]
     Indication: NASOPHARYNGEAL CANCER
     Dosage: 1000 MG, QD (DAYS 1-5 IN EACH CYCLE)
     Route: 065
  5. FLUOROURACIL [Suspect]
     Dosage: 1000 MG/M2, QD (DAY 1-4 IN EACH CYCLE)
     Route: 065
  6. LEUCOVORIN CALCIUM [Concomitant]
     Dosage: 25 MG/M2, QD
     Route: 065
  7. DEXAMETHASONE [Concomitant]
     Indication: VOMITING
     Route: 065
  8. ONDANSETRON [Concomitant]
     Indication: VOMITING
     Route: 065
  9. APREPITANT [Concomitant]
     Indication: VOMITING
     Route: 065
  10. HORMONAL CONTRACEPTIVES [Concomitant]
     Indication: CONTRACEPTION
     Route: 065
  11. RADIATION [Concomitant]

REACTIONS (15)
  - ARTERIAL BYPASS OPERATION [None]
  - ENDARTERECTOMY [None]
  - FEMORAL ARTERY EMBOLISM [None]
  - ILIAC ARTERY OCCLUSION [None]
  - INTERMITTENT CLAUDICATION [None]
  - LERICHE SYNDROME [None]
  - MUCOSAL INFLAMMATION [None]
  - PAIN [None]
  - PARAESTHESIA [None]
  - PERIPHERAL COLDNESS [None]
  - PERIPHERAL ISCHAEMIA [None]
  - PERIPHERAL REVASCULARISATION [None]
  - PULSE ABSENT [None]
  - SURGERY [None]
  - THROMBOEMBOLECTOMY [None]
